FAERS Safety Report 6252147-5 (Version None)
Quarter: 2009Q2

REPORT INFORMATION
  Report Type: 
  Country: None (occurrence: None)
  Receive Date: 20090630
  Receipt Date: 20060502
  Transmission Date: 20091009
  Serious: Yes (Hospitalization)
  Sender: FDA-Public Use
  Company Number: US-ROCHE-639339

PATIENT
  Sex: Male

DRUGS (7)
  1. ENFUVIRTIDE [Suspect]
     Route: 065
     Dates: start: 20050719, end: 20070104
  2. NORVIR [Concomitant]
     Dates: start: 20050719, end: 20070104
  3. REYATAZ [Concomitant]
     Dates: start: 20050719, end: 20070104
  4. TRUVADA [Concomitant]
     Dosage: FREQUENCY: QD
     Dates: start: 20050719, end: 20070104
  5. VANCOMYCIN [Concomitant]
     Dates: start: 20050725, end: 20050803
  6. VANCOMYCIN [Concomitant]
     Dates: start: 20050920, end: 20050925
  7. BACTROBAN [Concomitant]
     Dates: start: 20050927, end: 20051004

REACTIONS (1)
  - INTESTINAL OBSTRUCTION [None]
